FAERS Safety Report 9341310 (Version 1)
Quarter: 2013Q2

REPORT INFORMATION
  Report Type: Spontaneous
  Country: US (occurrence: None)
  Receive Date: 20130610
  Receipt Date: 20130610
  Transmission Date: 20140414
  Serious: Yes (Other)
  Sender: FDA-Public Use
  Company Number: None

PATIENT
  Age: 34 Year
  Sex: Female
  Weight: 54.54 kg

DRUGS (2)
  1. CEFTAROLINE [Suspect]
     Indication: CELLULITIS
     Dosage: -20ML- Q12 HOURS
     Route: 041
     Dates: start: 20130603, end: 20130605
  2. CEFTAROLINE [Suspect]
     Indication: STAPHYLOCOCCAL ABSCESS
     Dosage: -20ML- Q12 HOURS
     Route: 041
     Dates: start: 20130603, end: 20130605

REACTIONS (1)
  - Body temperature increased [None]
